FAERS Safety Report 4474564-6 (Version None)
Quarter: 2004Q4

REPORT INFORMATION
  Report Type: 
  Country: None (occurrence: None)
  Receive Date: 20041012
  Receipt Date: 20041006
  Transmission Date: 20050328
  Serious: Yes (Life-Threatening)
  Sender: FDA-Public Use
  Company Number: 2004AC00454

PATIENT
  Age: 79 Year
  Sex: Male

DRUGS (5)
  1. LIDOCAINE [Suspect]
     Indication: ANAESTHESIA
     Dosage: 3 ML ONCE ED
     Route: 008
  2. BENZODIAZEPAM [Concomitant]
  3. ESTAZOLAM [Concomitant]
  4. MIDAZOLAM HCL [Concomitant]
  5. SODIUM CHLORIDE INJ [Concomitant]

REACTIONS (11)
  - ANAESTHETIC COMPLICATION [None]
  - BLOOD PRESSURE DECREASED [None]
  - BRADYCARDIA [None]
  - CATHETER RELATED COMPLICATION [None]
  - DRUG INEFFECTIVE [None]
  - HYPOKINESIA [None]
  - LOSS OF CONSCIOUSNESS [None]
  - RESPIRATORY ARREST [None]
  - SPINAL ANAESTHESIA [None]
  - THERAPY NON-RESPONDER [None]
  - UNRESPONSIVE TO PAIN STIMULI [None]
